FAERS Safety Report 6179331-3 (Version None)
Quarter: 2009Q2

REPORT INFORMATION
  Report Type: 
  Country: None (occurrence: None)
  Receive Date: 20090501
  Receipt Date: 20090501
  Transmission Date: 20091009
  Serious: Yes (Other)
  Sender: FDA-Public Use
  Company Number: None

PATIENT
  Age: 68 Year
  Sex: Male
  Weight: 72.1219 kg

DRUGS (1)
  1. CELEBREX [Suspect]
     Dosage: 200MG PO QD
     Route: 048
     Dates: start: 20090219

REACTIONS (1)
  - HALLUCINATION, VISUAL [None]
